FAERS Safety Report 5481200-9 (Version None)
Quarter: 2007Q4

REPORT INFORMATION
  Report Type: 
  Country: None (occurrence: None)
  Receive Date: 20071010
  Receipt Date: 20071001
  Transmission Date: 20080405
  Serious: Yes (Other)
  Sender: FDA-Public Use
  Company Number: PHBS2007JP10988

PATIENT
  Age: 77 Year
  Sex: Female

DRUGS (6)
  1. SYMMETREL [Suspect]
     Indication: PARKINSON'S DISEASE
     Dosage: 1 TABLET/DAY
     Route: 048
     Dates: start: 20021018, end: 20040604
  2. TRIHEXYPHENIDYL HYDROCHLORIDE [Suspect]
     Indication: PARKINSON'S DISEASE
     Dosage: 1 TABLET/DAY
     Route: 048
     Dates: start: 20020902
  3. CABERGOLINE [Suspect]
     Indication: PARKINSON'S DISEASE
     Dosage: 1 TABLET/DAY
     Route: 048
     Dates: start: 20020901
  4. ALOSENN [Concomitant]
     Indication: CONSTIPATION
     Dosage: 0.5 G, UNK
     Route: 048
     Dates: start: 20020902, end: 20021209
  5. DEPAS [Concomitant]
     Indication: DEPRESSION
     Dosage: 1 G, UNK
     Route: 048
     Dates: start: 20030509, end: 20040905
  6. PARLODEL [Concomitant]
     Indication: PARKINSON'S DISEASE
     Dosage: 3 DF, UNK
     Dates: start: 20050901, end: 20061010

REACTIONS (5)
  - DECREASED APPETITE [None]
  - HALLUCINATION, VISUAL [None]
  - POSTURE ABNORMAL [None]
  - STOMACH DISCOMFORT [None]
  - TORTICOLLIS [None]
